FAERS Safety Report 7913065-7 (Version None)
Quarter: 2011Q4

REPORT INFORMATION
  Report Type: 
  Country: None (occurrence: None)
  Receive Date: 20111114
  Receipt Date: 20111111
  Transmission Date: 20120403
  Serious: Yes (Hospitalization)
  Sender: FDA-Public Use
  Company Number: JP-ABBOTT-11P-087-0860238-00

PATIENT
  Sex: Female
  Weight: 48 kg

DRUGS (13)
  1. GLUCOSE/ACETATED RINGER'S SOLUTION [Concomitant]
     Indication: NUTRITIONAL SUPPORT
     Dosage: 500ML DAILY
     Route: 042
     Dates: start: 20110619, end: 20110623
  2. NICOTINAMIDE/PAPAVERINE HYDROCHLORIDE [Concomitant]
     Indication: PRODUCT USED FOR UNKNOWN INDICATION
     Dosage: 6 DF DAILY
     Route: 048
  3. THIAMINE DISULFIDE PHOSPHATE_B6_B12 COMBINED DRUG [Concomitant]
     Indication: NUTRITIONAL SUPPORT
     Dosage: 1 DF DAILY
     Route: 042
     Dates: start: 20110619, end: 20110623
  4. HUMIRA [Suspect]
     Indication: CROHN'S DISEASE
     Route: 058
     Dates: start: 20110308, end: 20110308
  5. MESALAMINE [Concomitant]
     Indication: CROHN'S DISEASE
     Dosage: 3 GM DAILY
     Route: 048
     Dates: start: 20110317
  6. OMEPRAZOLE [Concomitant]
     Indication: CROHN'S DISEASE
     Dosage: 20MG DAILY
     Route: 048
     Dates: start: 20110713
  7. KILLED ESCHERICHIA COLI SUSPENSION/HYDROCORTISONE [Concomitant]
     Indication: HAEMORRHOIDS
     Dosage: Q.S.
     Route: 061
  8. HUMIRA [Suspect]
     Dates: start: 20110405
  9. SOLITA-T NO.3 [Concomitant]
     Indication: NUTRITIONAL SUPPORT
     Dosage: 1000ML DAILY
     Route: 042
     Dates: start: 20110619, end: 20110623
  10. MECOBALAMIN [Concomitant]
     Indication: PRODUCT USED FOR UNKNOWN INDICATION
     Dosage: 1.5MG DAILY
     Route: 048
  11. HUMIRA [Suspect]
     Dates: start: 20110322, end: 20110322
  12. SULFAMETHOXAZOLE AND TRIMETHOPRIM [Concomitant]
     Indication: INFECTION PROPHYLAXIS
     Dosage: 1 DF DAILY
     Route: 048
     Dates: start: 20110323, end: 20110411
  13. ADENOSINE TRIPHOSPHATE DISODIUM HYDRATE [Concomitant]
     Indication: TINNITUS
     Dosage: 300MG DAILY
     Route: 048

REACTIONS (5)
  - PRESYNCOPE [None]
  - ILEAL STENOSIS [None]
  - BRADYCARDIA [None]
  - VOMITING [None]
  - ELECTROLYTE IMBALANCE [None]
